FAERS Safety Report 12370688 (Version 3)
Quarter: 2016Q2

REPORT INFORMATION
  Report Type: Spontaneous
  Country: US (occurrence: US)
  Receive Date: 20160516
  Receipt Date: 20160617
  Transmission Date: 20160815
  Serious: Yes (Death, Hospitalization)
  Sender: FDA-Public Use
  Company Number: US-TAIHO ONCOLOGY INC-EU-2016-00969

PATIENT
  Age: 65 Year
  Sex: Male

DRUGS (4)
  1. LONSURF [Suspect]
     Active Substance: TIPIRACIL HYDROCHLORIDE\TRIFLURIDINE
     Indication: COLON CANCER
     Dosage: 20 MG BID AND 15 MG DAILY
     Route: 048
     Dates: start: 20160406
  2. VALSARTAN. [Concomitant]
     Active Substance: VALSARTAN
     Dosage: NI
  3. GUAIFENESIN. [Concomitant]
     Active Substance: GUAIFENESIN
     Dosage: NI
  4. AMLODIPINE [Concomitant]
     Active Substance: AMLODIPINE BESYLATE
     Dosage: NI

REACTIONS (6)
  - Disease progression [Unknown]
  - Dyspnoea [Unknown]
  - Oedema [Unknown]
  - Intentional product misuse [Unknown]
  - Acute kidney injury [Unknown]
  - Gastrointestinal haemorrhage [Fatal]

NARRATIVE: CASE EVENT DATE: 20160406
